FAERS Safety Report 7995166-0 (Version None)
Quarter: 2012Q1

REPORT INFORMATION
  Report Type: 
  Country: None (occurrence: None)
  Receive Date: 20111220
  Receipt Date: 20111209
  Transmission Date: 20120608
  Serious: Yes (Other)
  Sender: FDA-Public Use
  Company Number: JP-GLAXOSMITHKLINE-B0768968A

PATIENT

DRUGS (4)
  1. FLUTICASONE PROPIONATE/SALMETEROL [Suspect]
     Dosage: 2000MCG PER DAY
     Route: 055
  2. THEO-DUR [Concomitant]
     Route: 048
  3. MONTELUKAST SODIUM [Concomitant]
     Route: 048
  4. FLUTICASONE PROPIONATE/SALMETEROL [Suspect]
     Indication: ASTHMA
     Dosage: 1000MCG PER DAY
     Route: 055

REACTIONS (2)
  - ASTHMA [None]
  - DRUG PRESCRIBING ERROR [None]
